FAERS Safety Report 24236672 (Version 2)
Quarter: 2024Q3

REPORT INFORMATION
  Report Type: Report from Study
  Country: TW (occurrence: TW)
  Receive Date: 20240822
  Receipt Date: 20240828
  Transmission Date: 20241017
  Serious: Yes (Hospitalization, Other)
  Sender: ABBVIE
  Company Number: TW-ABBVIE-5886430

PATIENT
  Age: 70 Year
  Sex: Male
  Weight: 48 kg

DRUGS (2)
  1. RINVOQ [Suspect]
     Active Substance: UPADACITINIB
     Indication: Ankylosing spondylitis
     Route: 048
     Dates: start: 20240517, end: 20240613
  2. ISONIAZID [Concomitant]
     Active Substance: ISONIAZID
     Indication: Pulmonary tuberculosis

REACTIONS (5)
  - Road traffic accident [Unknown]
  - Lung neoplasm malignant [Recovering/Resolving]
  - Abnormal loss of weight [Unknown]
  - Decreased appetite [Unknown]
  - Mass [Unknown]

NARRATIVE: CASE EVENT DATE: 20240601
